FAERS Safety Report 5536528-0 (Version None)
Quarter: 2007Q4

REPORT INFORMATION
  Report Type: 
  Country: None (occurrence: None)
  Receive Date: 20071206
  Receipt Date: 20070928
  Transmission Date: 20080405
  Serious: Yes (Hospitalization)
  Sender: FDA-Public Use
  Company Number: US-AMGEN-STX245427

PATIENT
  Sex: Male

DRUGS (18)
  1. ENBREL [Suspect]
     Indication: RHEUMATOID ARTHRITIS
     Route: 065
  2. PREDNISONE TAB [Concomitant]
     Route: 048
  3. ACETAMINOPHEN [Concomitant]
     Route: 065
  4. AMLODIPINE [Concomitant]
     Route: 065
  5. ASPIRIN [Concomitant]
     Route: 048
  6. ATENOLOL [Concomitant]
     Route: 048
  7. CELEBREX [Concomitant]
     Route: 048
  8. DOXAZOSIN MESYLATE [Concomitant]
     Route: 048
  9. VICODIN [Concomitant]
     Route: 065
  10. DILAUDID [Concomitant]
     Route: 042
  11. IMDUR [Concomitant]
     Route: 048
  12. LEVOFLOXACIN [Concomitant]
     Route: 048
  13. ONDANSETRON [Concomitant]
     Route: 042
  14. PROTONIX [Concomitant]
     Route: 048
  15. K-DUR 10 [Concomitant]
     Route: 065
  16. SIMVASTATIN [Concomitant]
     Route: 048
  17. ZOCOR [Concomitant]
     Route: 048
  18. DYAZIDE [Concomitant]
     Route: 065

REACTIONS (1)
  - CHEST PAIN [None]
